FAERS Safety Report 15691084 (Version 7)
Quarter: 2022Q2

REPORT INFORMATION
  Report Type: Spontaneous
  Country: US (occurrence: US)
  Receive Date: 20181205
  Receipt Date: 20220401
  Transmission Date: 20220721
  Serious: Yes (Disabling, Other)
  Sender: FDA-Public Use
  Company Number: US-TEVA-2018-US-983067

PATIENT
  Age: 71 Year
  Sex: Female
  Weight: 58.96 kg

DRUGS (28)
  1. DOCETAXEL [Suspect]
     Active Substance: DOCETAXEL
     Indication: Breast cancer female
     Dosage: NUMBER OF CYCLE - 05, FREQUENCY - EVERY THREE WEEKS
     Route: 042
     Dates: start: 20140423
  2. DOCETAXEL [Suspect]
     Active Substance: DOCETAXEL
     Dosage: NUMBER OF CYCLE - 05, FREQUENCY - EVERY THREE WEEKS
     Route: 042
     Dates: start: 20140514
  3. DOCETAXEL [Suspect]
     Active Substance: DOCETAXEL
     Dosage: NUMBER OF CYCLE - 05, FREQUENCY - EVERY THREE WEEKS
     Route: 042
     Dates: start: 20140604
  4. DOCETAXEL [Suspect]
     Active Substance: DOCETAXEL
     Dosage: NUMBER OF CYCLE - 05, FREQUENCY - EVERY THREE WEEKS
     Route: 042
     Dates: start: 20140625
  5. DOCETAXEL [Suspect]
     Active Substance: DOCETAXEL
     Dosage: NUMBER OF CYCLE - 05, FREQUENCY - EVERY THREE WEEKS
     Route: 042
     Dates: start: 20140730
  6. CARBOPLATIN [Suspect]
     Active Substance: CARBOPLATIN
     Indication: Breast cancer female
     Route: 042
     Dates: start: 20140423
  7. CARBOPLATIN [Suspect]
     Active Substance: CARBOPLATIN
     Route: 042
     Dates: start: 20140514
  8. CARBOPLATIN [Suspect]
     Active Substance: CARBOPLATIN
     Route: 042
     Dates: start: 20140604
  9. CARBOPLATIN [Suspect]
     Active Substance: CARBOPLATIN
     Route: 042
     Dates: start: 20140625
  10. CARBOPLATIN [Suspect]
     Active Substance: CARBOPLATIN
     Route: 042
     Dates: start: 20140730
  11. HERCEPTIN [Suspect]
     Active Substance: TRASTUZUMAB
     Indication: Breast cancer female
     Dosage: HERCEPTIN WEEKLY
     Route: 042
     Dates: start: 20140423, end: 20140820
  12. HERCEPTIN [Suspect]
     Active Substance: TRASTUZUMAB
     Dosage: HERCEPTIN Q 3 WEEKS
     Route: 042
     Dates: start: 20140827, end: 20150325
  13. COREG [Concomitant]
     Active Substance: CARVEDILOL
     Route: 048
  14. COREG [Concomitant]
     Active Substance: CARVEDILOL
     Dosage: 2 DOSAGE FORMS DAILY; 1 TABLET 2 TIMES EVERYDAY WITH FOOD
     Route: 048
  15. COENZYME Q10 [Concomitant]
     Active Substance: DIETARY SUPPLEMENT\UBIDECARENONE
     Route: 048
     Dates: start: 20110202
  16. Omega 3-6-9 complex [Concomitant]
     Route: 048
  17. DIETARY SUPPLEMENT [Concomitant]
     Active Substance: DIETARY SUPPLEMENT
     Route: 048
  18. OMEPRAZOLE [Concomitant]
     Active Substance: OMEPRAZOLE
     Route: 048
  19. EPIPEN [Concomitant]
     Active Substance: EPINEPHRINE
     Indication: Anaphylactic reaction
     Dosage: 0.3MG/0.3ML DEVICE, INJECTION AS NEEDED
     Route: 030
     Dates: start: 20110203, end: 20160719
  20. LEVOTHYROXINE SODIUM [Concomitant]
     Active Substance: LEVOTHYROXINE SODIUM
     Route: 048
  21. ZOFRAN [Concomitant]
     Active Substance: ONDANSETRON HYDROCHLORIDE
     Dosage: 32 MILLIGRAM DAILY; EVERY 6 HOURS AS NEEDED
     Route: 048
     Dates: start: 20140417
  22. ZYRTEC [Concomitant]
     Active Substance: CETIRIZINE HYDROCHLORIDE
     Indication: Hypersensitivity
     Dosage: 10 MILLIGRAM DAILY;
     Route: 048
     Dates: start: 20110203
  23. AMIODARONE HYDROCHLORIDE [Concomitant]
     Active Substance: AMIODARONE HYDROCHLORIDE
     Dosage: 1/2 PER DAY
     Route: 065
     Dates: start: 2014
  24. PRILOSEC [Concomitant]
     Active Substance: OMEPRAZOLE MAGNESIUM
     Route: 065
     Dates: start: 20120810
  25. ASPIRIN [Concomitant]
     Active Substance: ASPIRIN
     Dosage: 81 MILLIGRAM DAILY;
     Route: 048
  26. BACTRIM [Concomitant]
     Active Substance: SULFAMETHOXAZOLE\TRIMETHOPRIM
     Dosage: 4 DOSAGE FORMS DAILY; 400 MG- 80 MG 2 TABLET BY ORAL ROUTE EVERY 12 HOURS
     Route: 048
     Dates: end: 20140527
  27. EMLA [Concomitant]
     Active Substance: LIDOCAINE\PRILOCAINE
     Dosage: TOPICAL ROUTE 30 MINUTES PRIOR TO IV
     Route: 061
     Dates: start: 20140430, end: 20140527
  28. PHENERGAN [Concomitant]
     Active Substance: PROMETHAZINE HYDROCHLORIDE
     Dosage: 100 MILLIGRAM DAILY; EVERY 6 HOURS AS NEEDED
     Route: 048
     Dates: start: 20140417

REACTIONS (18)
  - Alopecia totalis [Not Recovered/Not Resolved]
  - Alopecia areata [Not Recovered/Not Resolved]
  - Madarosis [Recovered/Resolved]
  - Breast cancer female [Unknown]
  - Hair texture abnormal [Not Recovered/Not Resolved]
  - Hair colour changes [Not Recovered/Not Resolved]
  - Dysphagia [Unknown]
  - Diarrhoea [Recovering/Resolving]
  - Dyspnoea [Recovering/Resolving]
  - Dizziness [Recovering/Resolving]
  - Discomfort [Recovering/Resolving]
  - Faeces discoloured [Recovering/Resolving]
  - Asthenia [Recovering/Resolving]
  - Fatigue [Unknown]
  - Dyskinesia [Unknown]
  - Nausea [Unknown]
  - Influenza [Unknown]
  - Illness [Unknown]

NARRATIVE: CASE EVENT DATE: 20140101
